FAERS Safety Report 7079024-4 (Version None)
Quarter: 2010Q4

REPORT INFORMATION
  Report Type: 
  Country: None (occurrence: None)
  Receive Date: 20101102
  Receipt Date: 20101028
  Transmission Date: 20110411
  Serious: Yes (Other)
  Sender: FDA-Public Use
  Company Number: US-GILEAD-2010-0033049

PATIENT
  Sex: Male
  Weight: 79.45 kg

DRUGS (6)
  1. LETAIRIS [Suspect]
     Indication: PULMONARY ARTERIAL HYPERTENSION
     Route: 048
     Dates: start: 20090730
  2. ADCIRCA [Concomitant]
  3. FUROSEMIDE [Concomitant]
  4. HYDRALAZINE [Concomitant]
  5. METHOTREXATE [Concomitant]
  6. POTASSIUM CHLORIDE [Concomitant]

REACTIONS (1)
  - LUNG TRANSPLANT [None]
